FAERS Safety Report 5517311-9 (Version None)
Quarter: 2007Q4

REPORT INFORMATION
  Report Type: 
  Country: None (occurrence: None)
  Receive Date: 20071114
  Receipt Date: 20071016
  Transmission Date: 20080405
  Serious: No
  Sender: FDA-Public Use
  Company Number: A0687816A

PATIENT
  Age: 29 Year
  Sex: Female

DRUGS (2)
  1. COMMIT [Suspect]
     Dates: start: 20071008, end: 20071011
  2. NICODERM CQ [Suspect]

REACTIONS (5)
  - APPLICATION SITE ERYTHEMA [None]
  - APPLICATION SITE PRURITUS [None]
  - HYPERSENSITIVITY [None]
  - NICOTINE DEPENDENCE [None]
  - THROAT IRRITATION [None]
